FAERS Safety Report 16243474 (Version 1)
Quarter: 2019Q2

REPORT INFORMATION
  Report Type: Spontaneous
  Country: CA (occurrence: CA)
  Receive Date: 20190426
  Receipt Date: 20190426
  Transmission Date: 20190711
  Serious: Yes (Other)
  Sender: FDA-Public Use
  Company Number: CA-PFIZER INC-2014161446

PATIENT
  Age: 56 Year
  Sex: Male

DRUGS (1)
  1. DOSTINEX [Suspect]
     Active Substance: CABERGOLINE
     Dosage: UNK

REACTIONS (6)
  - Blindness [Unknown]
  - Asthenia [Unknown]
  - Drug hypersensitivity [Recovering/Resolving]
  - Fatigue [Unknown]
  - Abdominal pain upper [Unknown]
  - Dyspepsia [Unknown]
